FAERS Safety Report 6383245-3 (Version None)
Quarter: 2009Q3

REPORT INFORMATION
  Report Type: 
  Country: None (occurrence: None)
  Receive Date: 20090929
  Receipt Date: 20090911
  Transmission Date: 20100115
  Serious: Yes (Hospitalization, Other)
  Sender: FDA-Public Use
  Company Number: JPI-P-007298

PATIENT
  Age: 49 Year
  Sex: Female
  Weight: 86.637 kg

DRUGS (6)
  1. XYREM          (500 MILLIGRAM/ MILLILITERS,) (SODIUM OXYBATE) [Suspect]
     Indication: CATAPLEXY
     Dosage: 4.5 GM (2.25 GM, 2 IN 1 D),ORAL; 6 GM (3 GM, 2 IN 1 D),ORAL ;  4 GM (2 GM, 2 IN 1 D),ORAL
     Route: 048
     Dates: start: 20090101, end: 20090801
  2. XYREM          (500 MILLIGRAM/ MILLILITERS,) (SODIUM OXYBATE) [Suspect]
     Indication: CATAPLEXY
     Dosage: 4.5 GM (2.25 GM, 2 IN 1 D),ORAL; 6 GM (3 GM, 2 IN 1 D),ORAL ;  4 GM (2 GM, 2 IN 1 D),ORAL
     Route: 048
     Dates: start: 20090801, end: 20090906
  3. XYREM          (500 MILLIGRAM/ MILLILITERS,) (SODIUM OXYBATE) [Suspect]
     Indication: CATAPLEXY
     Dosage: 4.5 GM (2.25 GM, 2 IN 1 D),ORAL; 6 GM (3 GM, 2 IN 1 D),ORAL ;  4 GM (2 GM, 2 IN 1 D),ORAL
     Route: 048
     Dates: start: 20090420
  4. METHADONE HYDROCHLORIDE [Concomitant]
  5. NICOTINE (POULTICE AR PATCH) [Concomitant]
  6. ISONIAZID [Concomitant]

REACTIONS (11)
  - BALANCE DISORDER [None]
  - CONVULSION [None]
  - DRUG INEFFECTIVE [None]
  - FEELING ABNORMAL [None]
  - GLUCOSE TOLERANCE IMPAIRED [None]
  - HALLUCINATIONS, MIXED [None]
  - HYPERTENSION [None]
  - INITIAL INSOMNIA [None]
  - STARING [None]
  - UNRESPONSIVE TO STIMULI [None]
  - WEIGHT INCREASED [None]
